FAERS Safety Report 5290932-7 (Version None)
Quarter: 2007Q2

REPORT INFORMATION
  Report Type: 
  Country: None (occurrence: None)
  Receive Date: 20070409
  Receipt Date: 20070327
  Transmission Date: 20071010
  Serious: Yes (Death)
  Sender: FDA-Public Use
  Company Number: GB-NOVOPROD-262188

PATIENT
  Sex: Female

DRUGS (1)
  1. INSULATARD [Suspect]

REACTIONS (1)
  - INTRA-UTERINE DEATH [None]
